FAERS Safety Report 8394831-3 (Version None)
Quarter: 2012Q1

REPORT INFORMATION
  Report Type: 
  Country: None (occurrence: None)
  Receive Date: 20120323
  Receipt Date: 20110404
  Transmission Date: 20120608
  Serious: Yes (Hospitalization)
  Sender: FDA-Public Use
  Company Number: 163-21880-11031735

PATIENT
  Age: 71 Year
  Sex: Female
  Weight: 77.1115 kg

DRUGS (5)
  1. METOPROLOL TARTRATE [Concomitant]
  2. REVLIMID [Suspect]
     Indication: MULTIPLE MYELOMA
     Dosage: 25 MG, 1 IN 1 D, PO 10 MG, 1 IN 1 D, PO
     Route: 048
     Dates: start: 20110214, end: 20110307
  3. REVLIMID [Suspect]
     Indication: MULTIPLE MYELOMA
     Dosage: 25 MG, 1 IN 1 D, PO 10 MG, 1 IN 1 D, PO
     Route: 048
     Dates: start: 20090601, end: 20090101
  4. FENTANYL [Concomitant]
  5. LYRICA (PREGABABLIN) (UNKNOWN) [Concomitant]

REACTIONS (1)
  - DEEP VEIN THROMBOSIS [None]
